FAERS Safety Report 10479154 (Version 2)
Quarter: 2014Q3

REPORT INFORMATION
  Report Type: Spontaneous
  Country: VE (occurrence: VE)
  Receive Date: 20140926
  Receipt Date: 20140926
  Transmission Date: 20150326
  Serious: Yes (Hospitalization, Other)
  Sender: FDA-Public Use
  Company Number: PHHY2014VE101297

PATIENT
  Sex: Male
  Weight: 8.3 kg

DRUGS (2)
  1. TEGRETOL [Suspect]
     Active Substance: CARBAMAZEPINE
     Indication: CONVULSION
     Dosage: 8.5 DAILY, DAILY
     Route: 048
     Dates: start: 201403, end: 20140810
  2. KEPPRA [Concomitant]
     Active Substance: LEVETIRACETAM
     Indication: EPILEPSY
     Dosage: 3 CM3, UNK
     Dates: start: 201403

REACTIONS (2)
  - Infantile spasms [Unknown]
  - Convulsion [Recovered/Resolved]

NARRATIVE: CASE EVENT DATE: 20140731
